FAERS Safety Report 7230345-1 (Version None)
Quarter: 2011Q1

REPORT INFORMATION
  Report Type: 
  Country: None (occurrence: None)
  Receive Date: 20110118
  Receipt Date: 20110111
  Transmission Date: 20110831
  Serious: Yes (Other)
  Sender: FDA-Public Use
  Company Number: IT-JNJFOC-20110103210

PATIENT
  Age: 25 Year
  Sex: Male

DRUGS (3)
  1. TAVOR [Suspect]
     Indication: ILL-DEFINED DISORDER
     Route: 048
  2. HALDOL [Suspect]
     Indication: ILL-DEFINED DISORDER
     Route: 048
  3. DENIBAN [Suspect]
     Indication: ILL-DEFINED DISORDER
     Route: 048

REACTIONS (3)
  - SLUGGISHNESS [None]
  - SELF INJURIOUS BEHAVIOUR [None]
  - MULTIPLE DRUG OVERDOSE INTENTIONAL [None]
